FAERS Safety Report 20008932 (Version 2)
Quarter: 2021Q4

REPORT INFORMATION
  Report Type: Spontaneous
  Country: US (occurrence: None)
  Receive Date: 20211028
  Receipt Date: 20211116
  Transmission Date: 20220304
  Serious: Yes (Other)
  Sender: FDA-Public Use
  Company Number: US-FRESENIUS KABI-FK202111618

PATIENT
  Age: 67 Year
  Sex: Female
  Weight: 55.34 kg

DRUGS (5)
  1. PACLITAXEL [Suspect]
     Active Substance: PACLITAXEL
     Indication: Breast cancer
     Dosage: ONCE, DOSE UNKNOWN, OVER 4 HOURS
     Dates: start: 20210602, end: 20210616
  2. PACLITAXEL [Suspect]
     Active Substance: PACLITAXEL
     Indication: Breast cancer
     Dosage: PACLITAXEL INJECTION (NORTH STAR)?ONCE, DOSE UNKNOWN, OVER 4 HOURS
     Dates: start: 20210630, end: 20210714
  3. LEVOTHYROXINE [Concomitant]
     Active Substance: LEVOTHYROXINE
     Indication: Product used for unknown indication
     Dosage: 50MCG DAILY
     Route: 065
  4. ROSUVASTATIN [Concomitant]
     Active Substance: ROSUVASTATIN
     Indication: Product used for unknown indication
     Dosage: DOSE UNKNOWN
     Route: 065
  5. ERGOCALCIFEROL/ASCORBIC ACID/THIAMINE HYDROCHLORIDE/RETINOL/RIBOFLAVIN [Concomitant]
     Indication: Product used for unknown indication
     Route: 065

REACTIONS (2)
  - Neuropathy peripheral [Not Recovered/Not Resolved]
  - Onychomadesis [Not Recovered/Not Resolved]
